FAERS Safety Report 5811254-9 (Version None)
Quarter: 2008Q3

REPORT INFORMATION
  Report Type: 
  Country: None (occurrence: None)
  Receive Date: 20080716
  Receipt Date: 20080704
  Transmission Date: 20090109
  Serious: Yes (Hospitalization)
  Sender: FDA-Public Use
  Company Number: PHHO2008DE08350

PATIENT
  Weight: 58.4 kg

DRUGS (2)
  1. CYCLOSPORINE [Suspect]
     Indication: RENAL TRANSPLANT
     Dosage: 300 MG, DAILY
     Route: 042
     Dates: start: 20070501, end: 20070519
  2. MYCOPHENOLATE MOFETIL [Suspect]
     Indication: RENAL TRANSPLANT
     Dosage: 2 G, DAILY
     Route: 042
     Dates: start: 20070501, end: 20070519

REACTIONS (3)
  - ABDOMINAL WOUND DEHISCENCE [None]
  - LYMPHOCELE [None]
  - SURGERY [None]
